FAERS Safety Report 14473471 (Version 2)
Quarter: 2021Q4

REPORT INFORMATION
  Report Type: Spontaneous
  Country: US (occurrence: US)
  Receive Date: 20180201
  Receipt Date: 20211216
  Transmission Date: 20220303
  Serious: Yes (Disabling)
  Sender: FDA-Public Use
  Company Number: US-TEVA-2018-US-854106

PATIENT
  Age: 66 Year
  Sex: Female

DRUGS (5)
  1. DOCETAXEL [Suspect]
     Active Substance: DOCETAXEL
     Indication: Breast cancer female
     Dosage: 4 CYCLES EVERY THREE WEEKS AT 250ML/HOUR
     Route: 065
     Dates: start: 20130513, end: 20130715
  2. CYCLOPHOSPHAMIDE [Concomitant]
     Active Substance: CYCLOPHOSPHAMIDE
     Indication: Breast cancer female
     Route: 065
  3. DOXORUBICIN [Concomitant]
     Active Substance: DOXORUBICIN
     Indication: Breast cancer female
     Route: 065
  4. TRAMADOL [Concomitant]
     Active Substance: TRAMADOL
     Route: 065
     Dates: start: 20110128
  5. MELOXICAM [Concomitant]
     Active Substance: MELOXICAM
     Route: 065
     Dates: start: 20110128

REACTIONS (4)
  - Alopecia areata [Not Recovered/Not Resolved]
  - Madarosis [Not Recovered/Not Resolved]
  - Hair colour changes [Not Recovered/Not Resolved]
  - Hair texture abnormal [Not Recovered/Not Resolved]

NARRATIVE: CASE EVENT DATE: 20140115
